FAERS Safety Report 9001953 (Version 1)
Quarter: 2013Q1

REPORT INFORMATION
  Report Type: Spontaneous
  Country: US (occurrence: US)
  Receive Date: 20130108
  Receipt Date: 20130108
  Transmission Date: 20140127
  Serious: Yes (Hospitalization, Other)
  Sender: FDA-Public Use
  Company Number: US-009507513-1301USA002149

PATIENT
  Age: 49 None
  Sex: Female

DRUGS (4)
  1. POTASSIUM CHLORIDE [Suspect]
  2. SPIRONOLACTONE [Suspect]
  3. COPAXONE [Suspect]
     Indication: MULTIPLE SCLEROSIS
     Dosage: 20 MG, UNK
     Route: 058
     Dates: start: 20120115, end: 201210
  4. COPAXONE [Suspect]
     Dosage: UNK
     Dates: start: 201211

REACTIONS (4)
  - Myocardial infarction [Recovered/Resolved]
  - Cardio-respiratory arrest [Recovered/Resolved]
  - Overdose [Unknown]
  - Hyperkalaemia [Unknown]
